FAERS Safety Report 12798209 (Version 1)
Quarter: 2016Q3

REPORT INFORMATION
  Report Type: Spontaneous
  Country: US (occurrence: US)
  Receive Date: 20160930
  Receipt Date: 20160930
  Transmission Date: 20161109
  Serious: Yes (Death, Other)
  Sender: FDA-Public Use
  Company Number: US-BRISTOL-MYERS SQUIBB COMPANY-BMS-2016-080074

PATIENT
  Sex: Male

DRUGS (1)
  1. OPDIVO [Suspect]
     Active Substance: NIVOLUMAB
     Indication: PANCREATIC CARCINOMA
     Dosage: 196 MG, UNK
     Route: 042
     Dates: start: 20160608, end: 20160817

REACTIONS (2)
  - Malignant neoplasm progression [Fatal]
  - Product use issue [Unknown]
